FAERS Safety Report 13342376 (Version 1)
Quarter: 2017Q1

REPORT INFORMATION
  Report Type: Spontaneous
  Country: US (occurrence: US)
  Receive Date: 20170316
  Receipt Date: 20170316
  Transmission Date: 20170428
  Serious: Yes (Other)
  Sender: FDA-Public Use
  Company Number: US-TEVA-749944USA

PATIENT
  Sex: Female

DRUGS (3)
  1. LDN (LOW-DOSE NALTREXONE) [Suspect]
     Active Substance: NALTREXONE
     Route: 065
     Dates: start: 201006
  2. TYSABRI [Suspect]
     Active Substance: NATALIZUMAB
     Dosage: 32
     Route: 065
     Dates: start: 2007, end: 2009
  3. COPAXONE [Suspect]
     Active Substance: GLATIRAMER ACETATE
     Route: 065
     Dates: start: 2001, end: 2007

REACTIONS (6)
  - Hemiparesis [Not Recovered/Not Resolved]
  - Secondary progressive multiple sclerosis [Unknown]
  - Motor dysfunction [Not Recovered/Not Resolved]
  - Walking aid user [Not Recovered/Not Resolved]
  - Gait disturbance [Unknown]
  - Wheelchair user [Unknown]
